FAERS Safety Report 15886046 (Version 2)
Quarter: 2019Q2

REPORT INFORMATION
  Report Type: Spontaneous
  Country: FR (occurrence: FR)
  Receive Date: 20190129
  Receipt Date: 20190424
  Transmission Date: 20190711
  Serious: Yes (Hospitalization)
  Sender: FDA-Public Use
  Company Number: FR-MYLANLABS-2019M1007683

PATIENT
  Age: 47 Year
  Sex: Male
  Weight: 100 kg

DRUGS (3)
  1. IBUPROFEN. [Suspect]
     Active Substance: IBUPROFEN
     Indication: PAIN
     Dosage: 400 MILLIGRAM
     Route: 048
     Dates: start: 20180330, end: 20180331
  2. KETOPROFEN. [Suspect]
     Active Substance: KETOPROFEN
     Indication: PAIN
     Dosage: UNK
     Route: 048
     Dates: start: 20180325, end: 20180325
  3. COLCHIMAX                          /00728901/ [Suspect]
     Active Substance: COLCHICINE\DICYCLOMINE HYDROCHLORIDE
     Indication: GOUT
     Dosage: UNK
     Route: 048
     Dates: start: 20180321, end: 20180323

REACTIONS (3)
  - Pyrexia [Recovered/Resolved]
  - Rash generalised [Recovered/Resolved]
  - Rash vesicular [Recovered/Resolved]

NARRATIVE: CASE EVENT DATE: 20180331
